FAERS Safety Report 9239457 (Version 1)
Quarter: 2013Q2

REPORT INFORMATION
  Report Type: Report from Study
  Country: CA (occurrence: CA)
  Receive Date: 20130418
  Receipt Date: 20130418
  Transmission Date: 20140414
  Serious: Yes (Hospitalization)
  Sender: FDA-Public Use
  Company Number: CA-JNJFOC-20130407548

PATIENT
  Sex: Female
  Weight: 60.78 kg

DRUGS (1)
  1. STELARA [Suspect]
     Indication: CROHN^S DISEASE

REACTIONS (2)
  - Parenteral nutrition [Unknown]
  - Off label use [Unknown]
